FAERS Safety Report 21774653 (Version 1)
Quarter: 2022Q4

REPORT INFORMATION
  Report Type: Spontaneous
  Country: GB (occurrence: GB)
  Receive Date: 20221224
  Receipt Date: 20221224
  Transmission Date: 20230113
  Serious: Yes (Other)
  Sender: FDA-Public Use
  Company Number: None

PATIENT
  Age: 68 Year
  Sex: Female
  Weight: 91 kg

DRUGS (15)
  1. AMLODIPINE [Suspect]
     Active Substance: AMLODIPINE BESYLATE
     Indication: Product used for unknown indication
     Dates: start: 20221201
  2. SIMVASTATIN [Concomitant]
     Active Substance: SIMVASTATIN
     Dosage: AT NIGHT
     Dates: start: 20211018
  3. CONOTRANE [Concomitant]
     Dosage: APPLY AS NEEDED TO AFFECTED AREAS AS A BARRIER
     Dates: start: 20211018
  4. DIHYDROCODEINE [Concomitant]
     Active Substance: DIHYDROCODEINE
     Dosage: ( IN CONJUNCTION WITH PATCH)
     Dates: start: 20211018
  5. CALCIUM CARBONATE\CHOLECALCIFEROL [Concomitant]
     Active Substance: CALCIUM CARBONATE\CHOLECALCIFEROL
     Dates: start: 20211018
  6. FENBID [Concomitant]
     Dosage: LIGHTLY RUB INTO THE AFFECTED AREA UNTIL ABSORB
     Dates: start: 20211018
  7. BECLOMETHASONE\FORMOTEROL [Concomitant]
     Active Substance: BECLOMETHASONE\FORMOTEROL
     Dosage: PUFFS
     Dates: start: 20211018
  8. LANSOPRAZOLE [Concomitant]
     Active Substance: LANSOPRAZOLE
     Dosage: WHEN REQUIRED
     Dates: start: 20211018
  9. LEVOTHYROXINE [Concomitant]
     Active Substance: LEVOTHYROXINE
     Dosage: BEFORE BREAKFAST
     Dates: start: 20211018
  10. MEBEVERINE HYDROCHLORIDE [Concomitant]
     Active Substance: MEBEVERINE HYDROCHLORIDE
     Dates: start: 20211018
  11. MIRTAZAPINE [Concomitant]
     Active Substance: MIRTAZAPINE
     Dosage: AT NIGHT
     Dates: start: 20211018
  12. ACETAMINOPHEN [Concomitant]
     Active Substance: ACETAMINOPHEN
     Dosage: TAKE ONE OR TWO FOUR TIMES A DAY, MAXIMUM 8 IN
     Dates: start: 20211018
  13. BUPRENORPHINE [Concomitant]
     Active Substance: BUPRENORPHINE
     Dosage: APPLY ONE PATCH EVERY 7DAYS. FIRMLY PRESS WITH
     Dates: start: 20211020
  14. ALBUTEROL [Concomitant]
     Active Substance: ALBUTEROL
     Dosage: INHALE ONE OR TWO PUFFS WHEN REQUIRED FOR SHORT
     Route: 055
     Dates: start: 20220926
  15. ALBUTEROL [Concomitant]
     Active Substance: ALBUTEROL
     Dosage: INHALE ONE OR TWO PUFFS WHEN REQUIRED FOR SHORT
     Route: 055
     Dates: start: 20211018, end: 20220926

REACTIONS (2)
  - Anuria [Recovered/Resolved]
  - Urinary retention [Unknown]

NARRATIVE: CASE EVENT DATE: 20221209
